FAERS Safety Report 10069151 (Version 1)
Quarter: 2014Q2

REPORT INFORMATION
  Report Type: Spontaneous
  Country: JP (occurrence: JP)
  Receive Date: 20140409
  Receipt Date: 20140409
  Transmission Date: 20141212
  Serious: Yes (Death, Other)
  Sender: FDA-Public Use
  Company Number: PHHY2014JP039792

PATIENT
  Sex: Male

DRUGS (2)
  1. CARBOPLATIN SANDOZ [Suspect]
     Indication: NON-SMALL CELL LUNG CANCER
  2. GIMERACIL W/OTERACIL POTASSIUM/TEGAFUR [Suspect]
     Indication: NON-SMALL CELL LUNG CANCER
     Route: 048

REACTIONS (5)
  - Death [Fatal]
  - Cytomegalovirus enterocolitis [Fatal]
  - Respiratory failure [Unknown]
  - Diarrhoea [Unknown]
  - Decreased appetite [Unknown]
